FAERS Safety Report 12846828 (Version 1)
Quarter: 2016Q4

REPORT INFORMATION
  Report Type: Spontaneous
  Country: US (occurrence: US)
  Receive Date: 20161013
  Receipt Date: 20161013
  Transmission Date: 20170207
  Serious: Yes (Other)
  Sender: FDA-Public Use
  Company Number: None

PATIENT
  Age: 79 Year
  Sex: Female
  Weight: 50 kg

DRUGS (2)
  1. CEFTRIAXONE. [Suspect]
     Active Substance: CEFTRIAXONE
     Indication: NOCARDIOSIS
     Route: 042
     Dates: start: 20160920
  2. CEFTRIAXONE. [Suspect]
     Active Substance: CEFTRIAXONE
     Indication: BRONCHIECTASIS
     Route: 042
     Dates: start: 20160920

REACTIONS (5)
  - Musculoskeletal discomfort [None]
  - Drug dose omission [None]
  - Arthralgia [None]
  - Limb discomfort [None]
  - Paraesthesia [None]

NARRATIVE: CASE EVENT DATE: 20160927
